FAERS Safety Report 8377202-5 (Version None)
Quarter: 2012Q2

REPORT INFORMATION
  Report Type: 
  Country: None (occurrence: None)
  Receive Date: 20120522
  Receipt Date: 20120410
  Transmission Date: 20120825
  Serious: No
  Sender: FDA-Public Use
  Company Number: US-ASTRAZENECA-2012SE23469

PATIENT
  Sex: Female

DRUGS (4)
  1. ARIMIDEX [Suspect]
     Indication: BREAST CANCER
     Route: 048
  2. TAMOXIFEN CITRATE [Suspect]
     Indication: BREAST CANCER
     Route: 048
  3. FASLODEX [Suspect]
     Indication: BREAST CANCER
     Route: 030
  4. AROMASIN [Suspect]
     Indication: BREAST CANCER
     Route: 065

REACTIONS (1)
  - DISEASE PROGRESSION [None]
